FAERS Safety Report 11829302 (Version 1)
Quarter: 2015Q4

REPORT INFORMATION
  Report Type: Spontaneous
  Country: US (occurrence: US)
  Receive Date: 20151211
  Receipt Date: 20151211
  Transmission Date: 20160305
  Serious: No
  Sender: FDA-Public Use
  Company Number: US-BAUSCH-BL-2015-012645

PATIENT
  Sex: Female

DRUGS (4)
  1. XENAZINE [Suspect]
     Active Substance: TETRABENAZINE
     Indication: TARDIVE DYSKINESIA
     Route: 048
     Dates: start: 201504
  2. ROPINIROLE. [Suspect]
     Active Substance: ROPINIROLE
     Indication: RESTLESS LEGS SYNDROME
     Route: 048
  3. XENAZINE [Suspect]
     Active Substance: TETRABENAZINE
     Route: 048
  4. XENAZINE [Suspect]
     Active Substance: TETRABENAZINE
     Dosage: 4 DAYS OR SO
     Route: 048

REACTIONS (3)
  - Off label use [Unknown]
  - Hypersomnia [Recovered/Resolved]
  - Apathy [Recovered/Resolved]
